FAERS Safety Report 9067255 (Version 1)
Quarter: 2013Q1

REPORT INFORMATION
  Report Type: Report from Study
  Country: US (occurrence: US)
  Receive Date: 20130131
  Receipt Date: 20130131
  Transmission Date: 20140127
  Serious: No
  Sender: FDA-Public Use
  Company Number: US-ABBOTT-12P-163-0999884-00

PATIENT
  Sex: Male

DRUGS (3)
  1. HUMIRA [Suspect]
     Indication: CROHN^S DISEASE
     Dosage: WEEK 0
     Route: 058
     Dates: start: 201209
  2. HUMIRA [Suspect]
     Dosage: WEEK 2
  3. HUMIRA [Suspect]
     Dosage: WEEK 4, AS DIRECTED BY PHYSICIAN

REACTIONS (3)
  - Sputum increased [Unknown]
  - Respiratory tract congestion [Unknown]
  - Chest discomfort [Unknown]
